FAERS Safety Report 14576789 (Version 1)
Quarter: 2018Q1

REPORT INFORMATION
  Report Type: Spontaneous
  Country: US (occurrence: US)
  Receive Date: 20180227
  Receipt Date: 20180227
  Transmission Date: 20180509
  Serious: No
  Sender: FDA-Public Use
  Company Number: US-BAYER-2018-037876

PATIENT
  Age: 47 Year
  Sex: Female

DRUGS (1)
  1. CLARITIN [Suspect]
     Active Substance: LORATADINE
     Indication: BONE PAIN
     Dosage: 2 DF, UNK
     Route: 048
     Dates: start: 20180223

REACTIONS (3)
  - Product use in unapproved indication [None]
  - Off label use [None]
  - Wrong dose [None]

NARRATIVE: CASE EVENT DATE: 20180223
